FAERS Safety Report 20133730 (Version 1)
Quarter: 2021Q4

REPORT INFORMATION
  Report Type: Spontaneous
  Country: US (occurrence: US)
  Receive Date: 20211201
  Receipt Date: 20211201
  Transmission Date: 20220303
  Serious: No
  Sender: FDA-Public Use
  Company Number: US-CHIESI-2021CHF03877

PATIENT
  Sex: Female

DRUGS (9)
  1. BETHKIS [Suspect]
     Active Substance: TOBRAMYCIN
     Indication: Burkholderia mallei infection
     Dosage: 150 MILLIGRAM, BID
     Route: 055
     Dates: start: 202102
  2. BETHKIS [Suspect]
     Active Substance: TOBRAMYCIN
     Indication: Pseudomonas infection
  3. BETHKIS [Suspect]
     Active Substance: TOBRAMYCIN
     Indication: Burkholderia pseudomallei infection
  4. BETHKIS [Suspect]
     Active Substance: TOBRAMYCIN
     Indication: Off label use
  5. SODIUM CHLORIDE [Concomitant]
     Active Substance: SODIUM CHLORIDE
     Indication: Product used for unknown indication
     Dosage: UNK
  6. BUDESONIDE [Concomitant]
     Active Substance: BUDESONIDE
     Indication: Product used for unknown indication
     Dosage: UNK
  7. STERILE WATER [Concomitant]
     Active Substance: WATER
     Indication: Product used for unknown indication
     Dosage: 10 MILLILITER, QD
  8. CIPRO [Concomitant]
     Active Substance: CIPROFLOXACIN HYDROCHLORIDE
     Indication: Product used for unknown indication
     Dosage: UNK
  9. COLISTIMETHATE SODIUM [Concomitant]
     Active Substance: COLISTIMETHATE SODIUM
     Indication: Product used for unknown indication
     Dosage: UNK

REACTIONS (4)
  - Weight increased [Unknown]
  - Off label use [Unknown]
  - Off label use [Unknown]
  - Off label use [Unknown]

NARRATIVE: CASE EVENT DATE: 20210101
